FAERS Safety Report 5917339-0 (Version None)
Quarter: 2008Q4

REPORT INFORMATION
  Report Type: 
  Country: None (occurrence: None)
  Receive Date: 20081014
  Receipt Date: 20081006
  Transmission Date: 20090506
  Serious: Yes (Death, Hospitalization, Other)
  Sender: FDA-Public Use
  Company Number: US-ELI_LILLY_AND_COMPANY-US200810001573

PATIENT
  Sex: Male

DRUGS (1)
  1. FORTEO [Suspect]

REACTIONS (3)
  - BLOOD IRON INCREASED [None]
  - CARDIAC ARREST [None]
  - HOSPITALISATION [None]
